FAERS Safety Report 8045696-0 (Version None)
Quarter: 2012Q1

REPORT INFORMATION
  Report Type: 
  Country: None (occurrence: None)
  Receive Date: 20120113
  Receipt Date: 20120111
  Transmission Date: 20120608
  Serious: Yes (Other)
  Sender: FDA-Public Use
  Company Number: US-BAYER-2012-003844

PATIENT
  Sex: Female

DRUGS (1)
  1. TRASYLOL [Suspect]
     Dosage: UNK
     Dates: start: 20071029

REACTIONS (7)
  - EMOTIONAL DISTRESS [None]
  - STRESS [None]
  - ANXIETY [None]
  - RENAL FAILURE [None]
  - RENAL IMPAIRMENT [None]
  - RENAL INJURY [None]
  - FEAR [None]
